FAERS Safety Report 5808764-7 (Version None)
Quarter: 2008Q3

REPORT INFORMATION
  Report Type: 
  Country: None (occurrence: None)
  Receive Date: 20080702
  Receipt Date: 20080422
  Transmission Date: 20090109
  Serious: Yes (Other)
  Sender: FDA-Public Use
  Company Number: US-WYE-H03819908

PATIENT
  Age: 74 Year
  Sex: Female
  Weight: 47.22 kg

DRUGS (3)
  1. ADVIL LIQUI-GELS [Suspect]
     Indication: BACK PAIN
     Dosage: ORAL
     Route: 048
     Dates: start: 20080215, end: 20080301
  2. ADVIL LIQUI-GELS [Suspect]
     Indication: BACK PAIN
     Dosage: ORAL
     Route: 048
     Dates: start: 20080309, end: 20080310
  3. ACETYLSALICYLIC ACID SRT [Concomitant]

REACTIONS (2)
  - SKIN DISCOLOURATION [None]
  - SWELLING FACE [None]
